FAERS Safety Report 16452861 (Version 1)
Quarter: 2019Q2

REPORT INFORMATION
  Report Type: Spontaneous
  Country: US (occurrence: US)
  Receive Date: 20190619
  Receipt Date: 20190619
  Transmission Date: 20190711
  Serious: No
  Sender: FDA-Public Use
  Company Number: US-SA-2019SA157468

PATIENT
  Age: 30 Year
  Sex: Female

DRUGS (2)
  1. DUPIXENT [Suspect]
     Active Substance: DUPILUMAB
     Dosage: 1 DF, QOW
     Dates: start: 20190420
  2. DUPIXENT [Suspect]
     Active Substance: DUPILUMAB
     Indication: DERMATITIS ATOPIC
     Dosage: 2 DF, 1X
     Dates: start: 20190406, end: 20190406

REACTIONS (10)
  - Diarrhoea [Unknown]
  - Hyperhidrosis [Unknown]
  - Muscle spasms [Unknown]
  - Flatulence [Unknown]
  - Pain [Unknown]
  - Abdominal distension [Unknown]
  - Dyspepsia [Unknown]
  - Oral herpes [Unknown]
  - Gastroenteritis viral [Unknown]
  - Nausea [Unknown]

NARRATIVE: CASE EVENT DATE: 20190506
